FAERS Safety Report 26021470 (Version 1)
Quarter: 2025Q4

REPORT INFORMATION
  Report Type: Spontaneous
  Country: US (occurrence: None)
  Receive Date: 20251110
  Receipt Date: 20251110
  Transmission Date: 20260117
  Serious: No
  Sender: FDA-CTU
  Company Number: None

PATIENT
  Age: 68 Year
  Sex: Female
  Weight: 90 kg

DRUGS (4)
  1. GAMMAGARD LIQUID [Suspect]
     Active Substance: HUMAN IMMUNOGLOBULIN G
     Indication: Chronic inflammatory demyelinating polyradiculoneuropathy
     Dosage: 30 G GRAM(S) DAILY INTRAVENOUS DRIP?
     Route: 041
  2. KETOROLAC [Concomitant]
     Active Substance: KETOROLAC TROMETHAMINE
  3. ondasetron 4mg/2ml [Concomitant]
  4. CETIRIZINE [Concomitant]
     Active Substance: CETIRIZINE HYDROCHLORIDE

REACTIONS (6)
  - Malaise [None]
  - Swelling of eyelid [None]
  - Vision blurred [None]
  - Headache [None]
  - Dysphonia [None]
  - Influenza like illness [None]

NARRATIVE: CASE EVENT DATE: 20251106
